FAERS Safety Report 10730631 (Version 2)
Quarter: 2015Q1

REPORT INFORMATION
  Report Type: Spontaneous
  Country: FR (occurrence: FR)
  Receive Date: 20150122
  Receipt Date: 20150206
  Transmission Date: 20150721
  Serious: Yes (Death)
  Sender: FDA-Public Use
  Company Number: FR-GE HEALTHCARE MEDICAL DIAGNOSTICS-VISP-PR-1501S-0008

PATIENT
  Age: 63 Year
  Sex: Male
  Weight: 87 kg

DRUGS (2)
  1. VISIPAQUE [Suspect]
     Active Substance: IODIXANOL
     Indication: DIAGNOSTIC PROCEDURE
  2. VISIPAQUE [Suspect]
     Active Substance: IODIXANOL
     Indication: INVESTIGATION ABNORMAL
     Route: 042
     Dates: start: 20150113, end: 20150113

REACTIONS (2)
  - Anaphylactic shock [Fatal]
  - Respiratory arrest [None]

NARRATIVE: CASE EVENT DATE: 20150113
